FAERS Safety Report 26056700 (Version 2)
Quarter: 2025Q4

REPORT INFORMATION
  Report Type: Report from Study
  Country: CA (occurrence: CA)
  Receive Date: 20251118
  Receipt Date: 20251124
  Transmission Date: 20260117
  Serious: Yes (Other)
  Sender: ALEXION PHARMACEUTICALS
  Company Number: CA-AstraZeneca-CH-00991859A

PATIENT
  Age: 42 Year
  Sex: Female

DRUGS (34)
  1. SOLIRIS [Suspect]
     Active Substance: ECULIZUMAB
     Indication: Atypical haemolytic uraemic syndrome
     Dosage: UNK,UNK
  2. SOLIRIS [Suspect]
     Active Substance: ECULIZUMAB
     Dosage: 900 MILLIGRAM,LOADING DOSE
     Dates: start: 20231203, end: 20231230
  3. SOLIRIS [Suspect]
     Active Substance: ECULIZUMAB
     Dosage: 1200 MILLIGRAM, Q2W
     Dates: start: 20140109
  4. COSOPT [Concomitant]
     Active Substance: DORZOLAMIDE HYDROCHLORIDE\TIMOLOL MALEATE
     Dosage: 1 DROP
     Route: 065
  5. MAGNESIUM [Concomitant]
     Active Substance: MAGNESIUM
     Dosage: 250 MILLIGRAM
  6. MYFORTIC [Concomitant]
     Active Substance: MYCOPHENOLATE SODIUM
     Dosage: 360 MILLIGRAM
  7. NIMENRIX [Concomitant]
     Active Substance: CLOSTRIDIUM TETANI TOXOID ANTIGEN (FORMALDEHYDE INACTIVATED)\MENINGOCOCCAL POLYSACCHARIDE VACCINE, G
     Route: 065
  8. CALCIUM CARBONATE\ERGOCALCIFEROL\RETINOL [Concomitant]
     Active Substance: CALCIUM CARBONATE\ERGOCALCIFEROL\RETINOL
     Dosage: 0.25 MG
  9. CARBOXYMETHYLCELLULOSE [Concomitant]
     Active Substance: CARBOXYMETHYLCELLULOSE
     Route: 065
  10. DEXILANT [Concomitant]
     Active Substance: DEXLANSOPRAZOLE
     Dosage: 30 MG
  11. DORZOLAMIDE [Concomitant]
     Active Substance: DORZOLAMIDE
     Dosage: UNK,BID
     Route: 065
  12. MYCOPHENOLIC ACID [Concomitant]
     Active Substance: MYCOPHENOLIC ACID
  13. MYCOPHENOLIC ACID [Concomitant]
     Active Substance: MYCOPHENOLIC ACID
     Dosage: 720 MILLIGRAM
  14. NYSTATIN [Concomitant]
     Active Substance: NYSTATIN
     Dosage: 500 MILIGRAM
  15. TRANDATE [Concomitant]
     Active Substance: LABETALOL HYDROCHLORIDE
     Dosage: 300 MG
  16. VITAMIN D [Concomitant]
     Active Substance: VITAMIN D NOS
     Dosage: 800 MILLIGRAM
  17. XALATAN [Concomitant]
     Active Substance: LATANOPROST
     Dosage: 1 DROP
     Route: 065
  18. Brimonidine biogaran [Concomitant]
     Dosage: 1 DROP,BID
     Route: 065
  19. TACROLIMUS [Concomitant]
     Active Substance: TACROLIMUS
     Dosage: 3 MILIGRAM
  20. PANTOPRAZOLE SODIUM [Concomitant]
     Active Substance: PANTOPRAZOLE SODIUM
     Dosage: 40 MILLIGRAM
  21. PENICILLIN V [Concomitant]
     Active Substance: PENICILLIN V
     Dosage: 300 MILLIGRAM,
  22. SEPTRA [Concomitant]
     Active Substance: SULFAMETHOXAZOLE\TRIMETHOPRIM
     Dosage: UNK
  23. TYLENOL [Concomitant]
     Active Substance: ACETAMINOPHEN
  24. CIPRO [Concomitant]
     Active Substance: CIPROFLOXACIN HYDROCHLORIDE
     Dosage: 500 MILIGRAM
  25. Adalat a.r. [Concomitant]
     Dosage: 30 MG
  26. CODEINE [Concomitant]
     Active Substance: CODEINE
     Dosage: 30 MG
     Route: 065
  27. DOCUSATE [Concomitant]
     Active Substance: DOCUSATE
     Dosage: 100 MG
     Route: 065
  28. ACYCLOVIR [Concomitant]
     Active Substance: ACYCLOVIR
     Dosage: 400 MG
     Route: 065
  29. BETADERM [Concomitant]
     Active Substance: BETAMETHASONE VALERATE
     Route: 065
  30. LATANOPROST [Concomitant]
     Active Substance: LATANOPROST
     Route: 065
  31. AMLODIPINE [Concomitant]
     Active Substance: AMLODIPINE BESYLATE
     Dosage: 5MG
  32. PERINDOPRIL [Concomitant]
     Active Substance: PERINDOPRIL
     Dosage: 2MG
  33. ATORVASTATIN [Concomitant]
     Active Substance: ATORVASTATIN
     Dosage: 20 MILLIGRAM,
  34. INFLUENZA VIRUS VACCINE [Concomitant]
     Active Substance: INFLUENZA VIRUS VACCINE
     Dosage: UNK
     Route: 065

REACTIONS (11)
  - Urosepsis [Recovered/Resolved]
  - Acute kidney injury [Recovered/Resolved]
  - Obesity [Unknown]
  - Escherichia infection [Unknown]
  - Headache [Unknown]
  - Blood pressure systolic increased [Unknown]
  - Proteinuria [Unknown]
  - Immunosuppressant drug level decreased [Unknown]
  - Anaemia [Unknown]
  - Microalbuminuria [Unknown]
  - Pain [Unknown]

NARRATIVE: CASE EVENT DATE: 20230414
